FAERS Safety Report 15506588 (Version 1)
Quarter: 2018Q4

REPORT INFORMATION
  Report Type: Spontaneous
  Country: US (occurrence: US)
  Receive Date: 20181016
  Receipt Date: 20181016
  Transmission Date: 20190205
  Serious: No
  Sender: FDA-Public Use
  Company Number: US-EX USA HOLDINGS-EXHL20180577

PATIENT
  Age: 37 Year
  Sex: Male

DRUGS (1)
  1. BENZNIDAZOLE. [Suspect]
     Active Substance: BENZNIDAZOLE
     Indication: AMERICAN TRYPANOSOMIASIS
     Dosage: 3 TABLETS
     Route: 048
     Dates: start: 201809, end: 2018

REACTIONS (3)
  - Dyspnoea [Unknown]
  - Rash [Unknown]
  - Product use issue [None]

NARRATIVE: CASE EVENT DATE: 201809
